FAERS Safety Report 8876155 (Version 1)
Quarter: 2012Q4

REPORT INFORMATION
  Report Type: 
  Country: US (occurrence: US)
  Receive Date: 20121023
  Receipt Date: 20121023
  Transmission Date: 20130627
  Serious: No
  Sender: FDA-Public Use
  Company Number: US-ASTRAZENECA-2012SE77239

PATIENT
  Age: 54 Year
  Sex: Male

DRUGS (2)
  1. RHINOCORT AQUA [Suspect]
     Route: 045
  2. NEXIUM [Suspect]
     Route: 048

REACTIONS (3)
  - Sinusitis [Unknown]
  - Malaise [Unknown]
  - Drug dose omission [Unknown]
